FAERS Safety Report 5508407-6 (Version None)
Quarter: 2007Q4

REPORT INFORMATION
  Report Type: 
  Country: None (occurrence: None)
  Receive Date: 20071107
  Receipt Date: 20071030
  Transmission Date: 20080405
  Serious: Yes (Other)
  Sender: FDA-Public Use
  Company Number: PHEH2007US03315

PATIENT
  Age: 65 Year
  Sex: Female
  Weight: 64.852 kg

DRUGS (5)
  1. ESTRADERM [Suspect]
     Indication: HORMONE REPLACEMENT THERAPY
     Route: 062
     Dates: start: 19880808, end: 19910101
  2. ESTRACE [Suspect]
     Indication: HORMONE REPLACEMENT THERAPY
     Route: 048
     Dates: start: 19910101, end: 19960101
  3. PREMPRO [Suspect]
     Indication: HORMONE REPLACEMENT THERAPY
     Route: 048
     Dates: start: 19960101, end: 20010101
  4. PREMARIN [Suspect]
     Indication: HORMONE REPLACEMENT THERAPY
     Dates: start: 19960101, end: 20010101
  5. PROVERA [Suspect]
     Indication: MENOPAUSE
     Dates: end: 20010801

REACTIONS (18)
  - ANXIETY [None]
  - BACK PAIN [None]
  - BREAST CANCER [None]
  - BREAST CELLULITIS [None]
  - CHOLECYSTECTOMY [None]
  - CHOLELITHIASIS [None]
  - DEPRESSION [None]
  - DIVERTICULITIS [None]
  - EXOMPHALOS [None]
  - FACET JOINT SYNDROME [None]
  - HERNIA REPAIR [None]
  - IRRITABLE BOWEL SYNDROME [None]
  - LYMPHADENECTOMY [None]
  - MALIGNANT BREAST LUMP REMOVAL [None]
  - RADIOTHERAPY [None]
  - SPINAL OSTEOARTHRITIS [None]
  - SPONDYLOLISTHESIS ACQUIRED [None]
  - UTERINE LEIOMYOMA [None]
